FAERS Safety Report 4422780-1 (Version None)
Quarter: 2004Q3

REPORT INFORMATION
  Report Type: 
  Country: None (occurrence: None)
  Receive Date: 20040719
  Receipt Date: 20030811
  Transmission Date: 20050211
  Serious: Yes (Death)
  Sender: FDA-Public Use
  Company Number: M03-INT-077

PATIENT
  Age: 53 Year
  Sex: Male

DRUGS (2)
  1. INTEGRILIN [Suspect]
     Indication: ACUTE CORONARY SYNDROME
     Dosage: SEE IMAGE
     Route: 040
     Dates: start: 20030701
  2. INTEGRILIN [Suspect]
     Indication: ACUTE CORONARY SYNDROME
     Dosage: SEE IMAGE
     Route: 040
     Dates: start: 20030801

REACTIONS (1)
  - CEREBROVASCULAR ACCIDENT [None]
